FAERS Safety Report 22092747 (Version 1)
Quarter: 2023Q1

REPORT INFORMATION
  Report Type: Spontaneous
  Country: US (occurrence: None)
  Receive Date: 20230313
  Receipt Date: 20230313
  Transmission Date: 20230418
  Serious: No
  Sender: FDA-Public Use
  Company Number: None

PATIENT
  Age: 57 Year
  Sex: Female
  Weight: 65.25 kg

DRUGS (1)
  1. COMBIPATCH [Suspect]
     Active Substance: ESTRADIOL\NORETHINDRONE ACETATE
     Indication: Hormone replacement therapy
     Dosage: OTHER QUANTITY : 8 PATCH(ES);?OTHER FREQUENCY : 1 PATCH, 2X WEEK;?
     Route: 062
     Dates: start: 20230227, end: 20230311

REACTIONS (2)
  - Application site rash [None]
  - Rash [None]

NARRATIVE: CASE EVENT DATE: 20230309
